FAERS Safety Report 5097762-X (Version None)
Quarter: 2006Q3

REPORT INFORMATION
  Report Type: 
  Country: None (occurrence: None)
  Receive Date: 20060901
  Receipt Date: 20060818
  Transmission Date: 20061208
  Serious: Yes (Other)
  Sender: FDA-Public Use
  Company Number: 224447

PATIENT
  Age: 65 Year
  Sex: Female

DRUGS (9)
  1. HERCEPTIN [Suspect]
     Indication: BREAST CANCER
     Dosage: SEE IMAGE, IV DRIP
     Route: 041
     Dates: start: 20060413, end: 20060413
  2. PREMEDICATION DRUGS (ANESTHETIC PREMEDICATION  NOS) [Concomitant]
  3. SOLU-MEDROL [Concomitant]
  4. AMINOPHYLLINE (AMINOPHYLLINE) [Concomitant]
  5. LOXOPROFEN (LOXOPROFEN SODIUM) [Concomitant]
  6. DIOVAN [Concomitant]
  7. AKINETON [Concomitant]
  8. SODIUM CHLORIDE [Concomitant]
  9. TOLOPELON (TIMIPERONE) [Concomitant]

REACTIONS (17)
  - BLOOD BILIRUBIN INCREASED [None]
  - BLOOD LACTATE DEHYDROGENASE INCREASED [None]
  - BLOOD PRESSURE INCREASED [None]
  - CHILLS [None]
  - COLD SWEAT [None]
  - DRUG INEFFECTIVE [None]
  - EYE ROLLING [None]
  - HAEMATOCRIT DECREASED [None]
  - INCONTINENCE [None]
  - INFUSION RELATED REACTION [None]
  - NAUSEA [None]
  - PLATELET COUNT DECREASED [None]
  - PYREXIA [None]
  - RED BLOOD CELL COUNT DECREASED [None]
  - RESPIRATORY FAILURE [None]
  - VOMITING [None]
  - WHEEZING [None]
